FAERS Safety Report 20082667 (Version 1)
Quarter: 2021Q4

REPORT INFORMATION
  Report Type: Spontaneous
  Country: CA (occurrence: CA)
  Receive Date: 20211117
  Receipt Date: 20211117
  Transmission Date: 20220303
  Serious: Yes (Other)
  Sender: FDA-Public Use
  Company Number: CA-TAKEDA-2021TUS071336

PATIENT
  Age: 73 Year
  Sex: Female
  Weight: 117 kg

DRUGS (16)
  1. MESALAMINE [Suspect]
     Active Substance: MESALAMINE
     Indication: Colitis ulcerative
     Route: 065
  2. INFLIXIMAB [Suspect]
     Active Substance: INFLIXIMAB
     Indication: Colitis ulcerative
     Dosage: 600 MILLIGRAM, Q8WEEKS
     Route: 042
  3. INFLIXIMAB [Suspect]
     Active Substance: INFLIXIMAB
     Dosage: 600 MILLIGRAM, Q8WEEKS
     Route: 042
     Dates: start: 20200215, end: 20210707
  4. INFLIXIMAB [Suspect]
     Active Substance: INFLIXIMAB
     Dosage: 600 MILLIGRAM, Q8WEEKS
     Route: 042
     Dates: start: 20200604
  5. INFLIXIMAB [Suspect]
     Active Substance: INFLIXIMAB
     Dosage: 600 MILLIGRAM, Q8WEEKS
     Route: 042
     Dates: start: 20200731
  6. INFLIXIMAB [Suspect]
     Active Substance: INFLIXIMAB
     Dosage: 600 MILLIGRAM, Q8WEEKS
     Route: 042
     Dates: start: 20200925
  7. INFLIXIMAB [Suspect]
     Active Substance: INFLIXIMAB
     Dosage: 600 MILLIGRAM, Q8WEEKS
     Route: 042
     Dates: start: 20210320
  8. INFLIXIMAB [Suspect]
     Active Substance: INFLIXIMAB
     Dosage: 600 MILLIGRAM, Q8WEEKS
     Route: 042
     Dates: start: 20210511
  9. INFLIXIMAB [Suspect]
     Active Substance: INFLIXIMAB
     Dosage: 600 MILLIGRAM, Q8WEEKS
     Route: 042
     Dates: start: 20210707
  10. INFLIXIMAB [Suspect]
     Active Substance: INFLIXIMAB
     Dosage: 600 MILLIGRAM
     Route: 042
     Dates: start: 20210809, end: 20210809
  11. INFLIXIMAB [Suspect]
     Active Substance: INFLIXIMAB
     Dosage: 600 MILLIGRAM
     Route: 042
     Dates: start: 20210907
  12. AZATHIOPRINE [Concomitant]
     Active Substance: AZATHIOPRINE
     Dosage: UNK
     Route: 065
  13. SYNTHROID [Concomitant]
     Active Substance: LEVOTHYROXINE SODIUM
     Dosage: UNK
     Route: 065
  14. POTASSIUM [Concomitant]
     Active Substance: POTASSIUM
     Dosage: UNK
     Route: 065
  15. CHLORTHALIDONE [Concomitant]
     Active Substance: CHLORTHALIDONE
     Dosage: UNK
     Route: 065
  16. FLURAZEPAM [Concomitant]
     Active Substance: FLURAZEPAM HYDROCHLORIDE
     Dosage: UNK
     Route: 065

REACTIONS (13)
  - Basal cell carcinoma [Unknown]
  - Hypertension [Unknown]
  - Condition aggravated [Not Recovered/Not Resolved]
  - Constipation [Recovering/Resolving]
  - Drug level above therapeutic [Unknown]
  - Anorectal disorder [Unknown]
  - Inflammation [Not Recovered/Not Resolved]
  - Malaise [Unknown]
  - Intentional product use issue [Unknown]
  - Product use issue [Unknown]
  - Drug ineffective [Unknown]
  - Inappropriate schedule of product administration [Unknown]
  - Off label use [Unknown]

NARRATIVE: CASE EVENT DATE: 20200604
